FAERS Safety Report 7025527-8 (Version None)
Quarter: 2010Q4

REPORT INFORMATION
  Report Type: 
  Country: None (occurrence: None)
  Receive Date: 20101003
  Receipt Date: 20100921
  Transmission Date: 20110411
  Serious: Yes (Hospitalization)
  Sender: FDA-Public Use
  Company Number: PHHY2010US56807

PATIENT
  Sex: Male

DRUGS (4)
  1. TASIGNA [Suspect]
     Indication: CHRONIC MYELOID LEUKAEMIA
     Dosage: 400 MG, BID
     Route: 048
     Dates: start: 20100709, end: 20100727
  2. METHADONE [Concomitant]
     Dosage: 80 MG DAILY
     Route: 048
  3. NEURONTIN [Concomitant]
  4. GLEEVEC [Concomitant]
     Dosage: UNK
     Dates: start: 20030101

REACTIONS (5)
  - ACUTE MYELOID LEUKAEMIA [None]
  - BLAST CELLS PRESENT [None]
  - CHRONIC MYELOID LEUKAEMIA [None]
  - CHRONIC MYELOID LEUKAEMIA TRANSFORMATION [None]
  - THROMBOCYTOPENIA [None]
